FAERS Safety Report 7878102-7 (Version None)
Quarter: 2011Q4

REPORT INFORMATION
  Report Type: 
  Country: None (occurrence: None)
  Receive Date: 20111101
  Receipt Date: 20111020
  Transmission Date: 20120403
  Serious: No
  Sender: FDA-Public Use
  Company Number: US-BIOGENIDEC-2011BI038523

PATIENT
  Sex: Female

DRUGS (1)
  1. TYSABRI [Suspect]
     Indication: MULTIPLE SCLEROSIS
     Route: 042
     Dates: start: 20080729, end: 20111006

REACTIONS (11)
  - MUSCLE SPASTICITY [None]
  - MUSCLE DISORDER [None]
  - DYSPNOEA [None]
  - HEADACHE [None]
  - MOBILITY DECREASED [None]
  - IMPAIRED REASONING [None]
  - EATING DISORDER [None]
  - GENERAL PHYSICAL HEALTH DETERIORATION [None]
  - NEURALGIA [None]
  - HYPOTONIA [None]
  - ASTHENIA [None]
